FAERS Safety Report 26028242 (Version 1)
Quarter: 2025Q4

REPORT INFORMATION
  Report Type: Spontaneous
  Country: US (occurrence: US)
  Receive Date: 20251111
  Receipt Date: 20251111
  Transmission Date: 20260117
  Serious: Yes (Other)
  Sender: FARMAKEIO OUTSOURCING LLC
  Company Number: US-FarmaKeio Outsourcing, LLC-2188329

PATIENT
  Age: 35 Year
  Sex: Female
  Weight: 68.182 kg

DRUGS (3)
  1. TESTOSTERONE\TRIAMCINOLONE ACETONIDE [Suspect]
     Active Substance: TESTOSTERONE\TRIAMCINOLONE ACETONIDE
     Indication: Fatigue
     Dates: start: 20250527
  2. TESTOSTERONE\TRIAMCINOLONE ACETONIDE [Suspect]
     Active Substance: TESTOSTERONE\TRIAMCINOLONE ACETONIDE
     Indication: Libido decreased
  3. Testosterone/Triamcinolone Acetonide 25mg/5mcg [Concomitant]
     Dates: start: 20250527

REACTIONS (1)
  - Implant site infection [Recovering/Resolving]
